FAERS Safety Report 6819188-8 (Version None)
Quarter: 2010Q3

REPORT INFORMATION
  Report Type: 
  Country: None (occurrence: None)
  Receive Date: 20100707
  Receipt Date: 20100628
  Transmission Date: 20110219
  Serious: Yes (Other)
  Sender: FDA-Public Use
  Company Number: IE-BAYER-201030404GPV

PATIENT
  Sex: Female

DRUGS (1)
  1. MIRENA [Suspect]
     Route: 064
     Dates: start: 20091005, end: 20091001

REACTIONS (2)
  - PREMATURE BABY [None]
  - SEPSIS NEONATAL [None]
